FAERS Safety Report 9631323 (Version 1)
Quarter: 2013Q4

REPORT INFORMATION
  Report Type: Spontaneous
  Country: US (occurrence: None)
  Receive Date: 20131017
  Receipt Date: 20131017
  Transmission Date: 20140711
  Serious: No
  Sender: FDA-Public Use
  Company Number: None

PATIENT
  Age: 60 Year
  Sex: Female
  Weight: 71.36 kg

DRUGS (2)
  1. CARBOPLATIN [Suspect]
     Dosage: CYCLE 1
     Dates: start: 20130905
  2. TAXOL [Suspect]
     Dates: start: 20130905

REACTIONS (1)
  - Neutrophil count decreased [None]
